FAERS Safety Report 12323905 (Version 1)
Quarter: 2016Q2

REPORT INFORMATION
  Report Type: Spontaneous
  Country: US (occurrence: US)
  Receive Date: 20160502
  Receipt Date: 20160502
  Transmission Date: 20160815
  Serious: Yes (Other)
  Sender: FDA-Public Use
  Company Number: US-TEVA-655656USA

PATIENT
  Sex: Female
  Weight: 48.58 kg

DRUGS (1)
  1. AZITHROMYCIN ANHYDROUS. [Suspect]
     Active Substance: AZITHROMYCIN ANHYDROUS
     Indication: INFECTION
     Dosage: 500 MILLIGRAM DAILY;
     Dates: start: 20160425, end: 20160426

REACTIONS (6)
  - Diarrhoea [Unknown]
  - Intentional product misuse [Unknown]
  - Wrong technique in product usage process [Unknown]
  - Choking [Unknown]
  - Vomiting [Unknown]
  - Dysphagia [Unknown]
